FAERS Safety Report 9351785 (Version 2)
Quarter: 2013Q3

REPORT INFORMATION
  Report Type: Spontaneous
  Country: AT (occurrence: AT)
  Receive Date: 20130617
  Receipt Date: 20130701
  Transmission Date: 20140515
  Serious: Yes (Other)
  Sender: FDA-Public Use
  Company Number: AT-BAYER-2013-055008

PATIENT
  Age: 18 Year
  Sex: Female
  Weight: 56 kg

DRUGS (2)
  1. NEXAVAR [Suspect]
     Indication: DESMOID TUMOUR
     Dosage: 200 MG, BID
     Dates: start: 20121119, end: 20121130
  2. NEXAVAR [Suspect]
     Indication: DESMOID TUMOUR
     Dosage: 200 MG, BID
     Dates: start: 20121207, end: 20130221

REACTIONS (13)
  - Aggression [Recovered/Resolved]
  - Dermatitis bullous [Recovered/Resolved]
  - Blister [Recovered/Resolved]
  - Alopecia [Recovered/Resolved]
  - Pruritus [Recovered/Resolved]
  - Onychalgia [Recovered/Resolved]
  - Increased appetite [Recovered/Resolved]
  - Off label use [None]
  - Amenorrhoea [None]
  - Rash [None]
  - Rash papular [None]
  - Sleep disorder [None]
  - Rash [Recovered/Resolved]
